FAERS Safety Report 12140925 (Version 1)
Quarter: 2016Q1

REPORT INFORMATION
  Report Type: Spontaneous
  Country: US (occurrence: None)
  Receive Date: 20160302
  Receipt Date: 20160302
  Transmission Date: 20160526
  Serious: No
  Sender: FDA-Public Use
  Company Number: None

PATIENT
  Age: 70 Year
  Sex: Female
  Weight: 74.9 kg

DRUGS (1)
  1. PROPOFOL 200MG/20ML [Suspect]
     Active Substance: PROPOFOL
     Indication: SEDATION
     Dosage: 400 MG TITRATED INTRAVENOUS
     Route: 042
     Dates: start: 20160218

REACTIONS (1)
  - Phlebitis [None]

NARRATIVE: CASE EVENT DATE: 20160218
